FAERS Safety Report 20046126 (Version 1)
Quarter: 2021Q4

REPORT INFORMATION
  Report Type: Spontaneous
  Country: US (occurrence: US)
  Receive Date: 20211109
  Receipt Date: 20211109
  Transmission Date: 20220303
  Serious: Yes (Hospitalization)
  Sender: FDA-Public Use
  Company Number: US-BIOVITRUM-2021US9826

PATIENT
  Sex: Male
  Weight: 5 kg

DRUGS (2)
  1. SYNAGIS [Suspect]
     Active Substance: PALIVIZUMAB
     Indication: Antiviral prophylaxis
     Route: 030
     Dates: start: 20210828
  2. AMLODIPINE BESYLATE [Concomitant]
     Active Substance: AMLODIPINE BESYLATE
     Dosage: 100 % POWDER

REACTIONS (4)
  - Respiratory syncytial virus infection [Unknown]
  - Atrial septal defect [Unknown]
  - Fistula [Unknown]
  - Blood pressure measurement [Unknown]
